FAERS Safety Report 4865853-1 (Version None)
Quarter: 2005Q4

REPORT INFORMATION
  Report Type: 
  Country: None (occurrence: None)
  Receive Date: 20051220
  Receipt Date: 20051208
  Transmission Date: 20060501
  Serious: Yes (Other)
  Sender: FDA-Public Use
  Company Number: 2005165746

PATIENT
  Age: 52 Year
  Sex: Female

DRUGS (3)
  1. DILANTIN KAPSEAL [Suspect]
     Indication: EPILEPSY
     Dosage: UNK (100 MG, UNKNOWN), ORAL
     Route: 048
  2. PREDNISOLONE (PREDNISOLONE) [Concomitant]
  3. PHENOBARBITAL TAB [Concomitant]

REACTIONS (1)
  - PHARMACEUTICAL PRODUCT COMPLAINT [None]
